FAERS Safety Report 4546034-8 (Version None)
Quarter: 2005Q1

REPORT INFORMATION
  Report Type: 
  Country: None (occurrence: None)
  Receive Date: 20050103
  Receipt Date: 20040730
  Transmission Date: 20050727
  Serious: Yes (Other)
  Sender: FDA-Public Use
  Company Number: HQWYE728503AUG04

PATIENT
  Age: 50 Year
  Sex: Female

DRUGS (1)
  1. PREMPRO [Suspect]
     Indication: HORMONE REPLACEMENT THERAPY

REACTIONS (3)
  - GALLBLADDER DISORDER [None]
  - LIVER DISORDER [None]
  - MESENTERIC VEIN THROMBOSIS [None]
